FAERS Safety Report 13245785 (Version 1)
Quarter: 2017Q1

REPORT INFORMATION
  Report Type: Spontaneous
  Country: NL (occurrence: NL)
  Receive Date: 20170217
  Receipt Date: 20170217
  Transmission Date: 20170428
  Serious: Yes (Death, Hospitalization, Other)
  Sender: FDA-Public Use
  Company Number: NL-LANNETT COMPANY, INC.-NL-2017LAN000570

PATIENT
  Age: 45 Year
  Sex: Female

DRUGS (5)
  1. METHADONE [Concomitant]
     Active Substance: METHADONE HYDROCHLORIDE
     Indication: PRODUCT USED FOR UNKNOWN INDICATION
     Dosage: UNK
  2. HYDROCHLOROTHIAZIDE (50MG) [Suspect]
     Active Substance: HYDROCHLOROTHIAZIDE
     Indication: PRODUCT USED FOR UNKNOWN INDICATION
     Dosage: UNK
  3. METOPROLOL. [Concomitant]
     Active Substance: METOPROLOL
     Indication: PRODUCT USED FOR UNKNOWN INDICATION
     Dosage: UNK
  4. VALSARTAN. [Concomitant]
     Active Substance: VALSARTAN
     Indication: PRODUCT USED FOR UNKNOWN INDICATION
     Dosage: UNK
  5. CLOMIPRAMINE [Concomitant]
     Active Substance: CLOMIPRAMINE
     Indication: PRODUCT USED FOR UNKNOWN INDICATION
     Dosage: UNK

REACTIONS (14)
  - Brain injury [Unknown]
  - Hypovolaemia [Unknown]
  - Acidosis [Unknown]
  - Cardiac arrest [Unknown]
  - Hypophosphataemia [Unknown]
  - Myocardial ischaemia [Unknown]
  - Loss of consciousness [Unknown]
  - Ventricular fibrillation [Unknown]
  - Unresponsive to stimuli [Fatal]
  - Sinus tachycardia [Unknown]
  - Blood creatinine decreased [Unknown]
  - Hypokalaemia [Fatal]
  - Pulse absent [Unknown]
  - Hypotension [Unknown]
